FAERS Safety Report 22168921 (Version 1)
Quarter: 2023Q2

REPORT INFORMATION
  Report Type: Report from Study
  Country: CA (occurrence: CA)
  Receive Date: 20230403
  Receipt Date: 20230403
  Transmission Date: 20230721
  Serious: Yes (Other)
  Sender: FDA-Public Use
  Company Number: CA-BIOGEN-2023BI01196822

PATIENT
  Age: 21 Year
  Sex: Female

DRUGS (1)
  1. TYSABRI [Suspect]
     Active Substance: NATALIZUMAB
     Indication: Multiple sclerosis
     Route: 050
     Dates: start: 20200528

REACTIONS (3)
  - Ovarian cancer [Recovered/Resolved]
  - Mouth ulceration [Unknown]
  - Anxiety [Unknown]

NARRATIVE: CASE EVENT DATE: 20230320
